FAERS Safety Report 19062903 (Version 2)
Quarter: 2021Q2

REPORT INFORMATION
  Report Type: Report from Study
  Country: JP (occurrence: JP)
  Receive Date: 20210326
  Receipt Date: 20210624
  Transmission Date: 20210717
  Serious: Yes (Life-Threatening)
  Sender: FDA-Public Use
  Company Number: JP-RECORDATI RARE DISEASES INC.-2019010324

PATIENT
  Age: 15 Day
  Sex: Female
  Weight: 1.08 kg

DRUGS (27)
  1. NEOPROFEN [Suspect]
     Active Substance: IBUPROFEN LYSINE
     Indication: PATENT DUCTUS ARTERIOSUS
     Dosage: 10 MILLIGRAM, QD
     Route: 042
     Dates: start: 20180904, end: 20180904
  2. GENTAMICIN SULFATE. [Concomitant]
     Active Substance: GENTAMICIN SULFATE
     Indication: PRODUCT USED FOR UNKNOWN INDICATION
     Dosage: UNK UNK, UNK
     Route: 065
     Dates: start: 20180901, end: 20180911
  3. SODIUM CHLORIDE. [Concomitant]
     Active Substance: SODIUM CHLORIDE
     Indication: PRODUCT USED FOR UNKNOWN INDICATION
     Dosage: UNK, UNK
     Route: 065
     Dates: start: 20180914, end: 20180918
  4. SODIUM CHLORIDE. [Concomitant]
     Active Substance: SODIUM CHLORIDE
     Indication: PRODUCT USED FOR UNKNOWN INDICATION
     Dosage: UNK, UNK
     Route: 065
     Dates: start: 20180916, end: 20180918
  5. NEOPROFEN [Suspect]
     Active Substance: IBUPROFEN LYSINE
     Dosage: 5 MILLIGRAM, QD
     Route: 042
     Dates: start: 20180905, end: 20180905
  6. NEOPROFEN [Suspect]
     Active Substance: IBUPROFEN LYSINE
     Dosage: 5 MILLIGRAM, QD
     Route: 042
     Dates: start: 20180906, end: 20180906
  7. HEPARIN SODIUM. [Concomitant]
     Active Substance: HEPARIN SODIUM
     Indication: PRODUCT USED FOR UNKNOWN INDICATION
     Dosage: UNK UNK, UNK
     Route: 065
     Dates: start: 20180831, end: 20180917
  8. NORMAL SALINE [Concomitant]
     Active Substance: SODIUM CHLORIDE
     Dosage: UNK UNK, UNK
     Route: 065
     Dates: start: 20180916, end: 20180917
  9. GLUCOSE [Concomitant]
     Active Substance: DEXTROSE
     Dosage: UNK UNK, UNK
     Route: 065
     Dates: start: 20180914, end: 20180918
  10. GLUCOSE [Concomitant]
     Active Substance: DEXTROSE
     Dosage: UNK UNK, UNK
     Route: 065
     Dates: start: 20180915, end: 20180915
  11. PANVITAN [ASCORBIC ACID;DEXPANTHENOL;ERGOCALCIFEROL;NICOTINAMIDE;PYRID [Concomitant]
     Indication: PRODUCT USED FOR UNKNOWN INDICATION
     Dosage: UNK UNK, UNK
     Route: 065
     Dates: start: 20180914, end: 20180918
  12. SODIUM PHOSPHATE [Concomitant]
     Active Substance: SODIUM PHOSPHATE
     Indication: PRODUCT USED FOR UNKNOWN INDICATION
     Dosage: UNK, UNK
     Route: 065
     Dates: start: 20180916, end: 20180918
  13. NORMAL SALINE [Concomitant]
     Active Substance: SODIUM CHLORIDE
     Indication: PRODUCT USED FOR UNKNOWN INDICATION
     Dosage: UNK UNK, UNK
     Route: 065
     Dates: start: 20180901, end: 20180906
  14. DOPAMINE HYDROCHLORIDE. [Concomitant]
     Active Substance: DOPAMINE HYDROCHLORIDE
     Indication: PRODUCT USED FOR UNKNOWN INDICATION
     Dosage: UNK UNK, UNK
     Route: 065
     Dates: start: 20180901, end: 20180907
  15. ALFAROL [Concomitant]
     Active Substance: ALFACALCIDOL
     Indication: PRODUCT USED FOR UNKNOWN INDICATION
     Dosage: UNK, UNK
     Route: 065
     Dates: start: 20180914, end: 20180918
  16. NEOPROFEN [Suspect]
     Active Substance: IBUPROFEN LYSINE
     Dosage: 5 MILLIGRAM, QD
     Route: 042
     Dates: start: 20180916, end: 20180916
  17. NEOPROFEN [Suspect]
     Active Substance: IBUPROFEN LYSINE
     Dosage: 5 MILLIGRAM, QD
     Route: 042
     Dates: start: 20180917, end: 20180917
  18. NOBELBAR [Concomitant]
     Active Substance: PHENOBARBITAL SODIUM
     Indication: PRODUCT USED FOR UNKNOWN INDICATION
     Dosage: UNK UNK, UNK
     Route: 065
     Dates: start: 20180901, end: 20180909
  19. MULTAMIN [ASCORBIC ACID;BIOTIN;COLECALCIFEROL;CYANOCOBALAMIN;FOLIC ACI [Concomitant]
     Indication: PRODUCT USED FOR UNKNOWN INDICATION
     Dosage: UNK UNK, UNK
     Route: 065
     Dates: start: 20180901, end: 20180913
  20. POTASSIUM CHLORIDE. [Concomitant]
     Active Substance: POTASSIUM CHLORIDE
     Indication: PRODUCT USED FOR UNKNOWN INDICATION
     Dosage: UNK, UNK
     Route: 065
     Dates: start: 20180904, end: 20180906
  21. NEOPROFEN [Suspect]
     Active Substance: IBUPROFEN LYSINE
     Dosage: 10 MILLIGRAM, QD
     Route: 042
     Dates: start: 20180915, end: 20180915
  22. CALCICOL [Concomitant]
     Active Substance: CALCIUM GLUCONATE
     Indication: PRODUCT USED FOR UNKNOWN INDICATION
     Dosage: UNK UNK, UNK
     Route: 065
     Dates: start: 20180831, end: 20180907
  23. VICCILIN [Concomitant]
     Active Substance: AMPICILLIN SODIUM
     Indication: PRODUCT USED FOR UNKNOWN INDICATION
     Dosage: UNK UNK, UNK
     Route: 065
     Dates: start: 20180901, end: 20180912
  24. GLUCOSE [Concomitant]
     Active Substance: DEXTROSE
     Indication: PRODUCT USED FOR UNKNOWN INDICATION
     Dosage: UNK UNK, UNK
     Route: 065
     Dates: start: 20180901, end: 20180913
  25. BIOFERMIN [Concomitant]
     Active Substance: DIETARY SUPPLEMENT\PROBIOTICS
     Indication: PRODUCT USED FOR UNKNOWN INDICATION
     Dosage: UNK, UNK
     Route: 065
     Dates: start: 20180901, end: 20180918
  26. PLEAMIN P [Concomitant]
     Indication: PRODUCT USED FOR UNKNOWN INDICATION
     Dosage: UNK, UNK
     Route: 065
     Dates: start: 20180902, end: 20180915
  27. REHABIX K2 [Concomitant]
     Indication: PRODUCT USED FOR UNKNOWN INDICATION
     Dosage: UNK, UNK
     Route: 065
     Dates: start: 20180903, end: 20180910

REACTIONS (2)
  - Pulmonary haemorrhage [Recovering/Resolving]
  - Hyponatraemia [Recovered/Resolved]

NARRATIVE: CASE EVENT DATE: 20180915
